FAERS Safety Report 6129844-5 (Version None)
Quarter: 2009Q1

REPORT INFORMATION
  Report Type: 
  Country: None (occurrence: None)
  Receive Date: 20090324
  Receipt Date: 20090317
  Transmission Date: 20090719
  Serious: Yes (Hospitalization)
  Sender: FDA-Public Use
  Company Number: JP-BAYER-200910333BYL

PATIENT
  Age: 73 Year
  Sex: Female

DRUGS (6)
  1. ADALAT CC [Suspect]
     Indication: HYPERTENSION
     Dosage: TOTAL DAILY DOSE: 40 MG  UNIT DOSE: 40 MG
     Route: 048
     Dates: start: 20060804, end: 20090130
  2. ACTOS [Concomitant]
     Indication: DIABETES MELLITUS
     Dosage: TOTAL DAILY DOSE: 30 MG
     Route: 048
     Dates: start: 20070102
  3. GLIMICRON [Concomitant]
     Indication: DIABETES MELLITUS
     Dosage: TOTAL DAILY DOSE: 80 MG
     Route: 048
     Dates: start: 20060329
  4. SEIBULE [Concomitant]
     Indication: DIABETES MELLITUS
     Dosage: TOTAL DAILY DOSE: 150 MG
     Route: 048
     Dates: start: 20060623
  5. DIOVAN [Concomitant]
     Indication: HYPERTENSION
     Dosage: TOTAL DAILY DOSE: 80 MG
     Route: 048
     Dates: start: 20060623
  6. OMEPRAL [Concomitant]
     Indication: REFLUX OESOPHAGITIS
     Dosage: TOTAL DAILY DOSE: 10 MG
     Route: 048
     Dates: start: 20060313

REACTIONS (2)
  - GINGIVAL SWELLING [None]
  - ORAL FIBROMA [None]
